FAERS Safety Report 6430715-5 (Version None)
Quarter: 2009Q4

REPORT INFORMATION
  Report Type: 
  Country: None (occurrence: None)
  Receive Date: 20091104
  Receipt Date: 20091026
  Transmission Date: 20100525
  Serious: Yes (Other)
  Sender: FDA-Public Use
  Company Number: 231895J09USA

PATIENT
  Age: 60 Year
  Sex: Female
  Weight: 90 kg

DRUGS (8)
  1. REBIF [Suspect]
     Indication: MULTIPLE SCLEROSIS
     Dosage: 44 MCG, 3 IN 1 WEEKS; SUBCUTANEOUS
     Route: 058
     Dates: start: 20040714
  2. TYLENOL [Concomitant]
  3. WELLBUTRIN (IBUPROPION HYDROCHLORIDE) [Concomitant]
  4. ALLEGRA [Concomitant]
  5. CENTURA (ALL OTHER THERAPEUTIC PRODUCTS) [Concomitant]
  6. ASCORBIC ACID [Concomitant]
  7. VITAMIN D [Concomitant]
  8. VITAMIN E [Concomitant]

REACTIONS (2)
  - BREAST CANCER FEMALE [None]
  - OVARIAN DISORDER [None]
